FAERS Safety Report 16865968 (Version 1)
Quarter: 2019Q3

REPORT INFORMATION
  Report Type: Spontaneous
  Country: US (occurrence: US)
  Receive Date: 20190930
  Receipt Date: 20190930
  Transmission Date: 20191005
  Serious: No
  Sender: FDA-Public Use
  Company Number: US-ALLERGAN-1918603US

PATIENT
  Age: 47 Year
  Sex: Female
  Weight: 51.7 kg

DRUGS (47)
  1. FENTANYL. [Concomitant]
     Active Substance: FENTANYL
     Indication: PANCREATITIS CHRONIC
  2. CREON [Concomitant]
     Active Substance: PANCRELIPASE AMYLASE\PANCRELIPASE LIPASE\PANCRELIPASE PROTEASE
     Indication: PANCREATITIS CHRONIC
     Dosage: 9000 UNITS, TID
  3. IBUPROFEN. [Concomitant]
     Active Substance: IBUPROFEN
     Indication: HEADACHE
     Dosage: 800 MG, PRN
     Route: 048
  4. MARINOL [Concomitant]
     Active Substance: DRONABINOL
     Indication: NAUSEA
     Dosage: 10 MG, QID
  5. SOMA [Concomitant]
     Active Substance: CARISOPRODOL
     Indication: HEADACHE
  6. TRILEPTAL [Concomitant]
     Active Substance: OXCARBAZEPINE
     Indication: BIPOLAR DISORDER
     Dosage: 1200 MG, QD
  7. LAMICTAL [Concomitant]
     Active Substance: LAMOTRIGINE
     Indication: BIPOLAR DISORDER
     Dosage: 25MG, 5 PILLS AT BEDTIME
     Route: 048
  8. CELEBREX [Concomitant]
     Active Substance: CELECOXIB
     Indication: CROHN^S DISEASE
  9. PROGESTERONE. [Concomitant]
     Active Substance: PROGESTERONE
     Indication: OOPHORECTOMY
     Dosage: 100 MG
     Route: 048
  10. ZOFRAN [Concomitant]
     Active Substance: ONDANSETRON HYDROCHLORIDE
     Indication: NAUSEA
     Dosage: 8 MG, IN THE MORNING
  11. ALLEGRA [Concomitant]
     Active Substance: FEXOFENADINE HYDROCHLORIDE
     Indication: RASH
     Dosage: 2-180 MG, TWICE DAILY
     Route: 048
  12. MIRALAX [Concomitant]
     Active Substance: POLYETHYLENE GLYCOL 3350
     Indication: CONSTIPATION
  13. FLAGYL [Suspect]
     Active Substance: METRONIDAZOLE\METRONIDAZOLE HYDROCHLORIDE
     Indication: GASTROINTESTINAL BACTERIAL INFECTION
     Dosage: 500 MG
     Route: 048
     Dates: start: 20181228, end: 20190101
  14. RITALIN [Concomitant]
     Active Substance: METHYLPHENIDATE HYDROCHLORIDE
     Indication: ATTENTION DEFICIT/HYPERACTIVITY DISORDER
     Dosage: 1, 10MG TABLET IN THE MORNING
     Route: 048
  15. CLONAZEPAM. [Concomitant]
     Active Substance: CLONAZEPAM
     Indication: ANXIETY
     Dosage: 1 MG, BID
     Route: 048
  16. SOMA [Concomitant]
     Active Substance: CARISOPRODOL
     Indication: BACK PAIN
     Dosage: 350 MG, PRN
     Route: 048
  17. DYAZIDE [Concomitant]
     Active Substance: HYDROCHLOROTHIAZIDE\TRIAMTERENE
     Indication: OEDEMA
     Dosage: 37.5MG/25MG, 1 CAPSULE IN THE MORNING
  18. FERROUS SULFATE. [Concomitant]
     Active Substance: FERROUS SULFATE
     Dosage: UNK
     Route: 048
     Dates: start: 20181018, end: 20181024
  19. VRAYLAR [Suspect]
     Active Substance: CARIPRAZINE
     Dosage: DID NOT USE THE FULL DOSE OF 1.5 MG
     Route: 048
     Dates: start: 20181130, end: 20181231
  20. MESALAMINE. [Concomitant]
     Active Substance: MESALAMINE
     Indication: CROHN^S DISEASE
     Dosage: 2 TABS IN THE MORNING
     Route: 048
  21. PANTOPRAZOLE [Concomitant]
     Active Substance: PANTOPRAZOLE
     Indication: GASTROOESOPHAGEAL REFLUX DISEASE
     Dosage: 40 MG
     Route: 048
  22. POTASSIUM CHLORIDE. [Concomitant]
     Active Substance: POTASSIUM CHLORIDE
     Indication: MALABSORPTION
     Dosage: 20 MEQ
     Route: 048
  23. IBUPROFEN. [Concomitant]
     Active Substance: IBUPROFEN
     Indication: PAIN
  24. RANITIDINE. [Concomitant]
     Active Substance: RANITIDINE
     Indication: GASTROOESOPHAGEAL REFLUX DISEASE
     Dosage: 300 MG AT BEDTIME
     Route: 048
  25. ESTRADIOL. [Concomitant]
     Active Substance: ESTRADIOL
     Indication: OOPHORECTOMY
     Dosage: 0.375 MG TWICE A WEEK
  26. CYTOMEO [Concomitant]
     Indication: HYPOTHYROIDISM
     Dosage: 25 ?G, QD
     Route: 048
  27. LEVOTHYROXINE. [Concomitant]
     Active Substance: LEVOTHYROXINE
     Indication: THYROID DISORDER
     Dosage: 112 MCG IN THE MORNING
     Route: 048
  28. VITAMIN D3 [Concomitant]
     Active Substance: CHOLECALCIFEROL
     Dosage: 5000 IU
     Route: 048
  29. VRAYLAR [Suspect]
     Active Substance: CARIPRAZINE
     Indication: BIPOLAR DISORDER
     Dosage: 1.5 MG
     Route: 048
     Dates: start: 20190404
  30. SEROQUEL [Concomitant]
     Active Substance: QUETIAPINE FUMARATE
     Indication: BIPOLAR DISORDER
     Dosage: 25MG DURING THE DAY, 2 TIMES DAILY, 200 MG AT BEDTIME, DECREASED WHEN ON VRAYLAR
     Route: 048
  31. LISINOPRIL. [Concomitant]
     Active Substance: LISINOPRIL
     Indication: HYPERTENSION
     Dosage: 10 MG
     Route: 048
  32. MARINOL [Concomitant]
     Active Substance: DRONABINOL
     Indication: BIPOLAR DISORDER
  33. TEMAZEPAM. [Concomitant]
     Active Substance: TEMAZEPAM
     Indication: SLEEP DISORDER
     Dosage: 30MG AND 15 MG AT BEDTIME
     Route: 048
  34. METFORMIN [Concomitant]
     Active Substance: METFORMIN HYDROCHLORIDE
     Dosage: 300 MG, TID
     Route: 048
  35. N-ACETYLCYSTEINE [Concomitant]
     Active Substance: ACETYLCYSTEINE
     Dosage: 600 MG, TID
     Route: 048
  36. FENTANYL. [Concomitant]
     Active Substance: FENTANYL
     Indication: PAIN
     Dosage: 25 MCG/HR, EVERY 48 HOURS
     Route: 061
  37. DILAUDID [Concomitant]
     Active Substance: HYDROMORPHONE HYDROCHLORIDE
     Indication: PANCREATITIS CHRONIC
  38. IRON [Concomitant]
     Active Substance: IRON
     Indication: IRON DEFICIENCY ANAEMIA
     Dosage: 5 DOSES
     Route: 042
     Dates: start: 201902, end: 201902
  39. MARINOL [Concomitant]
     Active Substance: DRONABINOL
     Indication: ANXIETY
  40. DILAUDID [Concomitant]
     Active Substance: HYDROMORPHONE HYDROCHLORIDE
     Indication: PAIN
     Dosage: 8 MG, BID
     Route: 048
  41. CELEBREX [Concomitant]
     Active Substance: CELECOXIB
     Indication: HEADACHE
     Dosage: 200 MG, PRN
     Route: 048
  42. RITALIN [Concomitant]
     Active Substance: METHYLPHENIDATE HYDROCHLORIDE
     Indication: BIPOLAR DISORDER
  43. CLONAZEPAM. [Concomitant]
     Active Substance: CLONAZEPAM
     Indication: BIPOLAR DISORDER
  44. IMITREX [Concomitant]
     Active Substance: SUMATRIPTAN SUCCINATE
     Indication: HEADACHE
     Dosage: UNK, PRN
  45. AMBIEN [Concomitant]
     Active Substance: ZOLPIDEM TARTRATE
     Indication: SLEEP DISORDER
     Dosage: 2 AT NIGHT
     Route: 048
  46. FISH OIL OMEGA 3 [Concomitant]
     Active Substance: FISH OIL
     Dosage: 3 DAILY
     Route: 048
  47. MIRALAX [Concomitant]
     Active Substance: POLYETHYLENE GLYCOL 3350
     Indication: CROHN^S DISEASE
     Dosage: UNK, PRN
     Route: 048

REACTIONS (13)
  - Body temperature increased [Recovered/Resolved]
  - Headache [Recovered/Resolved]
  - Rash [Not Recovered/Not Resolved]
  - Dizziness [Recovered/Resolved]
  - Agitation [Recovered/Resolved]
  - Chronic spontaneous urticaria [Unknown]
  - Hyperphagia [Recovered/Resolved]
  - Intentional product misuse [Unknown]
  - Rash [Recovered/Resolved]
  - Taste disorder [Recovered/Resolved]
  - Hyperglycaemia [Recovered/Resolved]
  - Somnolence [Recovered/Resolved]
  - Musculoskeletal stiffness [Recovered/Resolved]

NARRATIVE: CASE EVENT DATE: 2018
